FAERS Safety Report 13457833 (Version 2)
Quarter: 2017Q2

REPORT INFORMATION
  Report Type: Spontaneous
  Country: US (occurrence: US)
  Receive Date: 20170419
  Receipt Date: 20170424
  Transmission Date: 20170830
  Serious: Yes (Hospitalization, Disabling)
  Sender: FDA-Public Use
  Company Number: US-ROCHE-1905465

PATIENT
  Age: 55 Year
  Sex: Male

DRUGS (2)
  1. XOLAIR [Suspect]
     Active Substance: OMALIZUMAB
     Indication: CHRONIC SPONTANEOUS URTICARIA
     Dosage: SUBSEQUENT DOSE ON 08/MAR/2017
     Route: 058
     Dates: start: 201702
  2. DOXEPIN [Concomitant]
     Active Substance: DOXEPIN
     Route: 065

REACTIONS (2)
  - Ventricular tachycardia [Recovering/Resolving]
  - Urticaria [Not Recovered/Not Resolved]

NARRATIVE: CASE EVENT DATE: 201702
